FAERS Safety Report 6539128-9 (Version None)
Quarter: 2010Q1

REPORT INFORMATION
  Report Type: 
  Country: None (occurrence: None)
  Receive Date: 20100115
  Receipt Date: 20100104
  Transmission Date: 20100710
  Serious: Yes (Hospitalization)
  Sender: FDA-Public Use
  Company Number: AU-SANOFI-AVENTIS-2010SA001346

PATIENT
  Age: 76 Year
  Sex: Male
  Weight: 81.5 kg

DRUGS (15)
  1. CLOPIDOGREL BISULFATE [Suspect]
     Indication: ACUTE CORONARY SYNDROME
     Dates: start: 20091024, end: 20091102
  2. ASPIRIN [Concomitant]
     Dates: start: 19960101
  3. IMDUR [Concomitant]
     Dates: start: 20091023
  4. FRUSEMIDE [Concomitant]
     Dates: start: 19880229
  5. DILTIAZEM [Concomitant]
     Dates: start: 19980101
  6. ESOMEPRAZOLE [Concomitant]
     Dates: start: 19960101
  7. LISINOPRIL [Concomitant]
     Dates: start: 19980101
  8. METFORMIN HYDROCHLORIDE [Concomitant]
     Dates: start: 19960101
  9. ROSUVASTATIN [Concomitant]
     Dates: start: 20080101
  10. INSULIN GLARGINE [Concomitant]
     Dates: start: 20080101
  11. INSULIN ASPART [Concomitant]
     Dates: start: 20080101
  12. LOVAZA [Concomitant]
     Dates: start: 20080101
  13. GLUCOSAMINE [Concomitant]
     Dates: start: 20080101
  14. PARACETAMOL [Concomitant]
     Dates: start: 19880229
  15. NITROGLYCERIN [Concomitant]
     Dates: start: 19880101

REACTIONS (2)
  - ANAEMIA [None]
  - GASTROINTESTINAL ANGIODYSPLASIA [None]
